FAERS Safety Report 8558823-3 (Version None)
Quarter: 2012Q3

REPORT INFORMATION
  Report Type: 
  Country: None (occurrence: None)
  Receive Date: 20120801
  Receipt Date: 20120726
  Transmission Date: 20120928
  Serious: Yes (Hospitalization)
  Sender: FDA-Public Use
  Company Number: US-RB-042944-12

PATIENT
  Age: 55 Year
  Sex: Male

DRUGS (3)
  1. BUPRENORPHINE [Suspect]
     Indication: DRUG DEPENDENCE
     Route: 060
     Dates: start: 20100101, end: 20120701
  2. XANAX [Concomitant]
     Indication: ANXIETY
     Dosage: DOSING DETAILS UNKNOWN
     Route: 065
  3. AMBIEN [Concomitant]
     Indication: INSOMNIA
     Dosage: DOSING DETAILS UNKNOWN
     Route: 065

REACTIONS (1)
  - RENAL FAILURE [None]
